FAERS Safety Report 7119958-5 (Version None)
Quarter: 2010Q4

REPORT INFORMATION
  Report Type: 
  Country: None (occurrence: None)
  Receive Date: 20101123
  Receipt Date: 20101118
  Transmission Date: 20110411
  Serious: Yes (Other)
  Sender: FDA-Public Use
  Company Number: CHPA2010US17788

PATIENT
  Sex: Female

DRUGS (3)
  1. BENEFIBER W/ WHEAT DEXTRIN (NCH) [Suspect]
     Indication: NUTRITIONAL SUPPORT
     Dosage: 1 TSP, QD
     Route: 048
     Dates: start: 20100101
  2. BENEFIBER W/ WHEAT DEXTRIN (NCH) [Suspect]
     Dosage: 2 TSP, QD
     Route: 048
     Dates: start: 20101001, end: 20100101
  3. AMLODIPINE BESYLATE [Concomitant]
     Indication: HYPERTENSION
     Dosage: UNK, UNK
     Dates: start: 20080101

REACTIONS (1)
  - BLOOD PRESSURE INCREASED [None]
